FAERS Safety Report 21860420 (Version 1)
Quarter: 2023Q1

REPORT INFORMATION
  Report Type: Spontaneous
  Country: US (occurrence: None)
  Receive Date: 20230113
  Receipt Date: 20230113
  Transmission Date: 20230417
  Serious: No
  Sender: FDA-Public Use
  Company Number: None

PATIENT
  Age: 53 Year
  Sex: Female

DRUGS (2)
  1. AMBRISENTAN [Suspect]
     Active Substance: AMBRISENTAN
     Indication: Lung disorder
     Dosage: FREQUENCY : DAILY;?
     Route: 048
     Dates: start: 20220215
  2. AUGMENTIN [Concomitant]
     Active Substance: AMOXICILLIN\CLAVULANATE POTASSIUM
     Dates: start: 20220215

REACTIONS (5)
  - Urticaria [None]
  - Fungal infection [None]
  - Drug hypersensitivity [None]
  - Oropharyngeal pain [None]
  - Ear pain [None]

NARRATIVE: CASE EVENT DATE: 20230113
